FAERS Safety Report 20560619 (Version 14)
Quarter: 2024Q2

REPORT INFORMATION
  Report Type: Spontaneous
  Country: US (occurrence: US)
  Receive Date: 20220307
  Receipt Date: 20240430
  Transmission Date: 20240716
  Serious: Yes (Hospitalization, Other)
  Sender: FDA-Public Use
  Company Number: US-PFIZER INC-202200333928

PATIENT
  Age: 81 Year
  Sex: Female
  Weight: 68.49 kg

DRUGS (15)
  1. VYNDAMAX [Suspect]
     Active Substance: TAFAMIDIS
     Indication: Cardiac amyloidosis
     Dosage: UNK
  2. VYNDAMAX [Suspect]
     Active Substance: TAFAMIDIS
     Indication: Amyloidosis
     Dosage: 61 MG, 1X/DAY
     Route: 048
  3. VYNDAMAX [Suspect]
     Active Substance: TAFAMIDIS
     Dosage: 61 MG, 1X/DAY
     Route: 048
     Dates: start: 20240326
  4. ACETAMINOPHEN [Concomitant]
     Active Substance: ACETAMINOPHEN
     Dosage: 500 MG
  5. ATORVASTATIN [Concomitant]
     Active Substance: ATORVASTATIN
     Dosage: 20 MG
  6. CALCIUM [Concomitant]
     Active Substance: CALCIUM
     Dosage: 500/D
  7. COQ10 + D3 [Concomitant]
     Dosage: 100 MG
  8. FAMOTIDINE [Concomitant]
     Active Substance: FAMOTIDINE
     Dosage: 20 MG
  9. FUROSEMIDE [Concomitant]
     Active Substance: FUROSEMIDE
     Dosage: 40 MG
  10. GABAPENTIN [Concomitant]
     Active Substance: GABAPENTIN
     Dosage: 100 MG
  11. GABAPENTIN [Concomitant]
     Active Substance: GABAPENTIN
     Dosage: 300 MG
  12. MINERALS\VITAMINS [Concomitant]
     Active Substance: MINERALS\VITAMINS
     Dosage: UNK
  13. PROLIA [Concomitant]
     Active Substance: DENOSUMAB
     Dosage: 60 MG/ML
  14. TRAMADOL HCL [Concomitant]
     Active Substance: TRAMADOL HYDROCHLORIDE
     Dosage: 50 MG
  15. VITAMIN D3 [Concomitant]
     Active Substance: CHOLECALCIFEROL
     Dosage: 5000 IU

REACTIONS (27)
  - Atrial fibrillation [Recovered/Resolved]
  - Arthralgia [Unknown]
  - Echocardiogram abnormal [Unknown]
  - Hypertension [Unknown]
  - Chest pain [Unknown]
  - Spinal fracture [Unknown]
  - Dysstasia [Unknown]
  - Fluid retention [Unknown]
  - Back pain [Unknown]
  - Feeding disorder [Unknown]
  - Speech disorder [Unknown]
  - Hip arthroplasty [Unknown]
  - Heart rate decreased [Unknown]
  - Multiple fractures [Unknown]
  - Body height decreased [Unknown]
  - Atelectasis [Unknown]
  - Cardiomegaly [Unknown]
  - Weight increased [Unknown]
  - Gait disturbance [Unknown]
  - Injury [Unknown]
  - Muscular weakness [Unknown]
  - Heart rate increased [Recovering/Resolving]
  - Pain in extremity [Unknown]
  - Memory impairment [Unknown]
  - Loss of personal independence in daily activities [Unknown]
  - Osteoporosis [Unknown]
  - Tremor [Unknown]

NARRATIVE: CASE EVENT DATE: 20230101
